FAERS Safety Report 5991457-3 (Version None)
Quarter: 2008Q4

REPORT INFORMATION
  Report Type: 
  Country: None (occurrence: None)
  Receive Date: 20081202
  Receipt Date: 20071016
  Transmission Date: 20090506
  Serious: Yes (Other)
  Sender: FDA-Public Use
  Company Number: WAES 0606USA02239

PATIENT
  Age: 45 Year
  Sex: Female
  Weight: 78.0187 kg

DRUGS (1)
  1. FOSAMAX [Suspect]
     Indication: OSTEOPENIA
     Dosage: 70 MG/WKY/PO
     Route: 048
     Dates: start: 20021004, end: 20051024

REACTIONS (10)
  - CYSTITIS [None]
  - DYSURIA [None]
  - GLAUCOMA [None]
  - HAEMATOCHEZIA [None]
  - HAEMORRHOIDS [None]
  - HYPERSENSITIVITY [None]
  - INTERVERTEBRAL DISC PROTRUSION [None]
  - NEUROPATHY PERIPHERAL [None]
  - OSTEONECROSIS [None]
  - URINARY TRACT INFECTION [None]
